FAERS Safety Report 8417626-0 (Version None)
Quarter: 2012Q2

REPORT INFORMATION
  Report Type: 
  Country: None (occurrence: None)
  Receive Date: 20120606
  Receipt Date: 20120530
  Transmission Date: 20120825
  Serious: Yes (Other)
  Sender: FDA-Public Use
  Company Number: CA-ROCHE-1075501

PATIENT
  Sex: Female

DRUGS (1)
  1. XOLAIR [Suspect]
     Indication: ASTHMA
     Route: 058
     Dates: start: 20070207

REACTIONS (5)
  - BLOOD PRESSURE INCREASED [None]
  - ASTHMA [None]
  - STRESS [None]
  - FATIGUE [None]
  - HYPERSENSITIVITY [None]
